FAERS Safety Report 7985943-4 (Version None)
Quarter: 2011Q4

REPORT INFORMATION
  Report Type: 
  Country: None (occurrence: None)
  Receive Date: 20111216
  Receipt Date: 20110503
  Transmission Date: 20120403
  Serious: Yes (Hospitalization, Disabling)
  Sender: FDA-Public Use
  Company Number: CH-B.I. PHARMACEUTICALS,INC./RIDGEFIELD-2011-AP-00239SI

PATIENT
  Sex: Female
  Weight: 50 kg

DRUGS (3)
  1. MIDAZOLAM HCL [Concomitant]
     Dosage: MAX 32MG / H-REDUCED IN COURSE -  ADMINISTERED PER PERFUSOR
     Route: 042
  2. DEXTROSE [Suspect]
     Indication: HYPOGLYCAEMIA
     Dosage: 20%, THAN 10 - 5% PERIPHERAL
     Route: 042
     Dates: start: 20110406, end: 20110406
  3. CLONIDINE [Suspect]
     Indication: DELIRIUM TREMENS
     Dosage: 75 MCG / HOUR - ADMINISTERED PER PERFUSOR
     Route: 042
     Dates: start: 20110406, end: 20110406

REACTIONS (3)
  - NECROSIS [None]
  - BLISTER [None]
  - SCAR [None]
